FAERS Safety Report 8343530-2 (Version None)
Quarter: 2012Q2

REPORT INFORMATION
  Report Type: 
  Country: None (occurrence: None)
  Receive Date: 20120503
  Receipt Date: 20120503
  Transmission Date: 20120825
  Serious: Yes (Hospitalization)
  Sender: FDA-Public Use
  Company Number: None

PATIENT
  Sex: Male
  Weight: 15.9 kg

DRUGS (18)
  1. MELPHALAN HYDROCHLORIDE [Suspect]
     Dosage: 135 MG
  2. ATIVAN [Concomitant]
  3. CEFTAZIDMIE [Concomitant]
  4. VANCOMYCIN [Concomitant]
  5. MOUTHWASH [Concomitant]
  6. ZOFRAN [Concomitant]
  7. ALBUMIN (HUMAN) [Concomitant]
  8. CALCIUM CHLORIDE [Concomitant]
  9. CLINDAMYCIN [Concomitant]
  10. MORPHINE [Concomitant]
  11. CARBOPLATIN [Suspect]
     Dosage: 1088 MG
  12. TPN [Concomitant]
  13. ETOPOSIDE [Suspect]
     Dosage: 864 MG
  14. CALCITRIOL [Concomitant]
  15. DIFLUCAN [Concomitant]
  16. PROTONIX [Concomitant]
  17. DIPHENHYDRAMINE HCL [Concomitant]
  18. LASIX [Concomitant]

REACTIONS (11)
  - BLOOD CALCIUM INCREASED [None]
  - RENAL IMPAIRMENT [None]
  - OLIGURIA [None]
  - DYSPNOEA [None]
  - PULMONARY OEDEMA [None]
  - HAEMODIALYSIS [None]
  - VENOOCCLUSIVE DISEASE [None]
  - WEIGHT INCREASED [None]
  - MYOCARDIAL ISCHAEMIA [None]
  - CARDIO-RESPIRATORY ARREST [None]
  - ASCITES [None]
